FAERS Safety Report 24556583 (Version 2)
Quarter: 2024Q4

REPORT INFORMATION
  Report Type: Spontaneous
  Country: US (occurrence: US)
  Receive Date: 20241028
  Receipt Date: 20241127
  Transmission Date: 20250115
  Serious: No
  Sender: PFIZER
  Company Number: US-PFIZER INC-202400285375

PATIENT
  Age: 84 Year
  Sex: Female

DRUGS (2)
  1. PREMARIN [Suspect]
     Active Substance: ESTROGENS, CONJUGATED
     Indication: Hysterectomy
     Dosage: UNK
     Dates: start: 1978
  2. PREMARIN [Suspect]
     Active Substance: ESTROGENS, CONJUGATED
     Dosage: 0.625 MG/G
     Route: 067
     Dates: start: 20241023

REACTIONS (5)
  - Burning sensation [Unknown]
  - Urinary tract infection [Unknown]
  - Bladder disorder [Unknown]
  - Off label use [Unknown]
  - Wrong technique in product usage process [Unknown]
